FAERS Safety Report 8126044-4 (Version None)
Quarter: 2012Q1

REPORT INFORMATION
  Report Type: 
  Country: None (occurrence: None)
  Receive Date: 20120209
  Receipt Date: 20120206
  Transmission Date: 20120608
  Serious: Yes (Hospitalization)
  Sender: FDA-Public Use
  Company Number: CN-ROCHE-1037366

PATIENT
  Age: 27 Year
  Sex: Female
  Weight: 45 kg

DRUGS (2)
  1. MABTHERA [Suspect]
     Indication: NON-HODGKIN'S LYMPHOMA
     Route: 041
     Dates: start: 20110930, end: 20120117
  2. CHEMOTHERAPY DRUG NOS [Concomitant]
     Indication: NON-HODGKIN'S LYMPHOMA
     Route: 041
     Dates: start: 20110930, end: 20120117

REACTIONS (6)
  - PLATELET COUNT DECREASED [None]
  - ANAL FISSURE [None]
  - SPLENOMEGALY [None]
  - HAEMOGLOBIN DECREASED [None]
  - PYREXIA [None]
  - WHITE BLOOD CELL COUNT DECREASED [None]
